FAERS Safety Report 8483891-7 (Version None)
Quarter: 2012Q2

REPORT INFORMATION
  Report Type: 
  Country: None (occurrence: None)
  Receive Date: 20120627
  Receipt Date: 20120627
  Transmission Date: 20120825
  Serious: Yes (Other)
  Sender: FDA-Public Use
  Company Number: None

PATIENT
  Age: 39 Year
  Sex: Female
  Weight: 115.6 kg

DRUGS (1)
  1. OFIRMEV [Suspect]
     Indication: PAIN
     Dosage: 1000MG GOT 1 DOSE IV DRIP SINGLE DOSE
     Route: 041
     Dates: start: 20120625, end: 20120625

REACTIONS (1)
  - HYPOACUSIS [None]
